FAERS Safety Report 14035427 (Version 7)
Quarter: 2020Q3

REPORT INFORMATION
  Report Type: Report from Study
  Country: CA (occurrence: CA)
  Receive Date: 20171003
  Receipt Date: 20200908
  Transmission Date: 20201102
  Serious: Yes (Hospitalization, Other)
  Sender: FDA-Public Use
  Company Number: PHHY2017CA032939

PATIENT
  Age: 80 Year
  Sex: Female

DRUGS (4)
  1. ENTRESTO [Suspect]
     Active Substance: SACUBITRIL\VALSARTAN
     Indication: CARDIAC FAILURE
     Dosage: 2 DF (24MG /26MG) , UNK
     Route: 065
     Dates: start: 20160908, end: 20170111
  2. ENTRESTO [Suspect]
     Active Substance: SACUBITRIL\VALSARTAN
     Dosage: 2 DF ( 49MG /51MG) , UNK
     Route: 065
     Dates: start: 20170907
  3. ENTRESTO [Suspect]
     Active Substance: SACUBITRIL\VALSARTAN
     Dosage: 2 DF ( 49MG /51MG) , UNK
     Route: 065
     Dates: start: 20170112, end: 20170906
  4. ENTRESTO [Suspect]
     Active Substance: SACUBITRIL\VALSARTAN
     Dosage: 1 DF (24MG /26MG)  UNK
     Route: 065
     Dates: start: 20170907

REACTIONS (12)
  - Palpitations [Recovered/Resolved]
  - Syncope [Recovered/Resolved]
  - Cardiac failure chronic [Recovered/Resolved]
  - Upper respiratory tract infection [Recovered/Resolved]
  - Acute kidney injury [Recovered/Resolved]
  - Nasopharyngitis [Recovered/Resolved]
  - Chest pain [Recovered/Resolved]
  - Hypotension [Not Recovered/Not Resolved]
  - Hypervolaemia [Recovered/Resolved]
  - Insomnia [Recovered/Resolved]
  - Ventricular tachycardia [Recovered/Resolved]
  - Bronchitis [Recovered/Resolved]

NARRATIVE: CASE EVENT DATE: 20160928
